FAERS Safety Report 8153414-0 (Version None)
Quarter: 2012Q1

REPORT INFORMATION
  Report Type: 
  Country: None (occurrence: None)
  Receive Date: 20120221
  Receipt Date: 20120210
  Transmission Date: 20120608
  Serious: Yes (Hospitalization, Other)
  Sender: FDA-Public Use
  Company Number: CA-ROCHE-1038172

PATIENT
  Sex: Male
  Weight: 83.4 kg

DRUGS (13)
  1. ACTEMRA [Suspect]
     Dosage: DRUG HOLD TILL SURGERY
     Route: 042
     Dates: start: 20100811
  2. VITAMIN D [Concomitant]
  3. PREDNISONE TAB [Suspect]
     Indication: RHEUMATOID ARTHRITIS
     Route: 048
     Dates: start: 20090407
  4. PREDNISONE [Concomitant]
  5. PLAVIX [Concomitant]
     Indication: CAROTID ARTERY DISEASE
     Route: 048
     Dates: start: 20100413
  6. ACTEMRA [Suspect]
     Indication: RHEUMATOID ARTHRITIS
     Route: 042
     Dates: start: 20100831
  7. CALCIUM [Concomitant]
     Route: 048
  8. ACETAMINOPHEN [Concomitant]
     Indication: ANALGESIC THERAPY
     Route: 048
  9. RISEDRONATE SODIUM [Concomitant]
     Indication: OSTEOPOROSIS
  10. LIPITOR [Concomitant]
     Indication: DYSLIPIDAEMIA
     Route: 048
  11. NITROGLYCERIN SPRAY [Concomitant]
     Indication: CHEST PAIN
     Route: 058
  12. ADALAT CC [Concomitant]
     Indication: HYPERTENSION
     Route: 048
  13. PANTOPRAZOLE [Concomitant]
     Route: 048
     Dates: start: 20090921

REACTIONS (1)
  - HIP FRACTURE [None]
